FAERS Safety Report 11370319 (Version 1)
Quarter: 2015Q3

REPORT INFORMATION
  Report Type: Report from Study
  Country: US (occurrence: US)
  Receive Date: 20150812
  Receipt Date: 20150812
  Transmission Date: 20151125
  Serious: Yes (Other)
  Sender: FDA-Public Use
  Company Number: US-JNJFOC-20150805277

PATIENT
  Age: 29 Year
  Sex: Female

DRUGS (5)
  1. BETA-CAROTENE [Concomitant]
     Route: 048
  2. ALOE VERA [Concomitant]
     Active Substance: ALOE VERA LEAF
     Route: 048
  3. ROWASA [Concomitant]
     Active Substance: MESALAMINE
     Route: 054
  4. NULYTELY [Concomitant]
     Active Substance: POLYETHYLENE GLYCOL 3350\POTASSIUM CHLORIDE\SODIUM BICARBONATE\SODIUM CHLORIDE
     Route: 048
  5. REMICADE [Suspect]
     Active Substance: INFLIXIMAB
     Indication: CROHN^S DISEASE
     Route: 042

REACTIONS (2)
  - Blood creatinine decreased [Unknown]
  - Large intestinal stenosis [Unknown]

NARRATIVE: CASE EVENT DATE: 2012
